FAERS Safety Report 13593272 (Version 1)
Quarter: 2017Q2

REPORT INFORMATION
  Report Type: Spontaneous
  Country: US (occurrence: US)
  Receive Date: 20170530
  Receipt Date: 20170530
  Transmission Date: 20170830
  Serious: Yes (Other)
  Sender: FDA-Public Use
  Company Number: US-ELITE LABORATORIES INC.-2017ELT00010

PATIENT
  Age: 66 Year
  Sex: Male

DRUGS (2)
  1. NALTREXONE [Suspect]
     Active Substance: NALTREXONE
     Dosage: 2 MG, 1X/DAY
     Route: 065
  2. OXYCODONE [Suspect]
     Active Substance: OXYCODONE
     Indication: WOUND COMPLICATION
     Dosage: 5 MG, UNK
     Route: 065

REACTIONS (2)
  - Drug interaction [Unknown]
  - Unresponsive to stimuli [Unknown]
